FAERS Safety Report 7607436 (Version 5)
Quarter: 2013Q4

REPORT INFORMATION
  Report Type: Spontaneous
  Country: US (occurrence: US)
  Receive Date: 20100927
  Receipt Date: 20131112
  Transmission Date: 20140711
  Serious: Yes (Other)
  Sender: FDA-Public Use
  Company Number: US-ASTRAZENECA-2010SE09231

PATIENT
  Age: 54 Year
  Sex: Female
  Weight: 89.8 kg

DRUGS (23)
  1. ARIMIDEX [Suspect]
     Indication: BREAST CANCER
     Route: 048
     Dates: start: 2010
  2. ARIMIDEX [Suspect]
     Indication: BREAST CANCER
     Route: 048
     Dates: start: 20100312
  3. NEXIUM [Suspect]
     Dosage: DAILY
     Route: 048
  4. NEXIUM [Suspect]
     Route: 048
     Dates: start: 2005
  5. SEROQUEL [Suspect]
     Indication: BIPOLAR I DISORDER
     Route: 048
  6. SEROQUEL [Suspect]
     Indication: SLEEP DISORDER
     Route: 048
  7. SEROQUEL [Suspect]
     Indication: BIPOLAR DISORDER
     Route: 048
  8. SEROQUEL [Suspect]
     Indication: BIPOLAR I DISORDER
     Dosage: 200 MG AT BEDTIME AND 25 MG IN AFTERNOON
     Route: 048
     Dates: start: 2004, end: 201310
  9. SEROQUEL [Suspect]
     Indication: SLEEP DISORDER
     Dosage: 200 MG AT BEDTIME AND 25 MG IN AFTERNOON
     Route: 048
     Dates: start: 2004, end: 201310
  10. SEROQUEL [Suspect]
     Indication: BIPOLAR DISORDER
     Dosage: 200 MG AT BEDTIME AND 25 MG IN AFTERNOON
     Route: 048
     Dates: start: 2004, end: 201310
  11. SEROQUEL [Suspect]
     Indication: BIPOLAR I DISORDER
     Route: 048
     Dates: start: 201310
  12. SEROQUEL [Suspect]
     Indication: SLEEP DISORDER
     Route: 048
     Dates: start: 201310
  13. SEROQUEL [Suspect]
     Indication: BIPOLAR DISORDER
     Route: 048
     Dates: start: 201310
  14. SEROQUEL [Suspect]
     Indication: BIPOLAR I DISORDER
     Dosage: GENERIC
     Route: 065
  15. SEROQUEL [Suspect]
     Indication: SLEEP DISORDER
     Dosage: GENERIC
     Route: 065
  16. SEROQUEL [Suspect]
     Indication: BIPOLAR DISORDER
     Dosage: GENERIC
     Route: 065
  17. DESIPRAMINE [Concomitant]
     Indication: DEPRESSION
  18. HYDROCODONE [Concomitant]
     Indication: RESTLESS LEGS SYNDROME
  19. RADIATION TREATMENT [Concomitant]
  20. PROTONIX [Concomitant]
     Route: 048
     Dates: start: 2012
  21. CLONAZEPAM [Concomitant]
     Indication: ANXIETY
     Route: 048
     Dates: start: 2005
  22. CITALOPRAM [Concomitant]
     Indication: ANTIDEPRESSANT THERAPY
     Route: 048
     Dates: start: 2005
  23. TEMAZEPAM [Concomitant]
     Indication: SLEEP DISORDER
     Route: 048
     Dates: start: 2005

REACTIONS (21)
  - Neoplasm malignant [Unknown]
  - Breast cancer [Unknown]
  - Uterine mass [Unknown]
  - Gastric cancer [Unknown]
  - Circulatory collapse [Unknown]
  - Spinal fracture [Unknown]
  - Fall [Unknown]
  - Malaise [Unknown]
  - Gastrooesophageal reflux disease [Unknown]
  - Post-traumatic stress disorder [Unknown]
  - Anxiety [Unknown]
  - Insomnia [Unknown]
  - Restless legs syndrome [Unknown]
  - Hot flush [Unknown]
  - Dizziness [Unknown]
  - Urticaria [Unknown]
  - Nausea [Unknown]
  - Barrett^s oesophagus [Unknown]
  - Weight increased [Unknown]
  - Drug dose omission [Unknown]
  - Intentional drug misuse [Unknown]
